FAERS Safety Report 9424673 (Version 1)
Quarter: 2013Q3

REPORT INFORMATION
  Report Type: Spontaneous
  Country: IE (occurrence: IE)
  Receive Date: 20130725
  Receipt Date: 20130725
  Transmission Date: 20140515
  Serious: Yes (Death, Hospitalization)
  Sender: FDA-Public Use
  Company Number: IPC201307-000286

PATIENT
  Age: 52 Year
  Sex: Female
  Weight: 58 kg

DRUGS (4)
  1. HYDROXYCHLOROQUINE SULFATE [Suspect]
     Dates: start: 1995
  2. PREDNISOLONE [Suspect]
     Route: 048
  3. WARFARIN [Suspect]
  4. BISOPROLOL [Suspect]

REACTIONS (3)
  - Cardiomyopathy [None]
  - Cardiac failure acute [None]
  - Bundle branch block left [None]
